FAERS Safety Report 4286050-7 (Version None)
Quarter: 2004Q1

REPORT INFORMATION
  Report Type: 
  Country: None (occurrence: None)
  Receive Date: 20040114
  Receipt Date: 20030211
  Transmission Date: 20041129
  Serious: No
  Sender: FDA-Public Use
  Company Number: 332144

PATIENT
  Sex: Female

DRUGS (2)
  1. ROCEPHIN [Suspect]
     Indication: DRUG USE FOR UNKNOWN INDICATION
     Dosage: 1 PER ONE DOSE
     Dates: start: 20000615
  2. CEFAZOLIN [Concomitant]

REACTIONS (4)
  - ANAPHYLACTIC REACTION [None]
  - BLOOD PRESSURE DECREASED [None]
  - OROPHARYNGEAL SWELLING [None]
  - PARAESTHESIA ORAL [None]
